FAERS Safety Report 7386815-9 (Version None)
Quarter: 2011Q1

REPORT INFORMATION
  Report Type: 
  Country: None (occurrence: None)
  Receive Date: 20110331
  Receipt Date: 20110328
  Transmission Date: 20110831
  Serious: Yes (Other)
  Sender: FDA-Public Use
  Company Number: AU-PFIZER INC-2011068927

PATIENT

DRUGS (1)
  1. XALATAN [Suspect]

REACTIONS (4)
  - EYE IRRITATION [None]
  - HYPERSENSITIVITY [None]
  - EYE PRURITUS [None]
  - ERYTHEMA [None]
